FAERS Safety Report 6563211-5 (Version None)
Quarter: 2010Q1

REPORT INFORMATION
  Report Type: 
  Country: None (occurrence: None)
  Receive Date: 20100130
  Receipt Date: 20091214
  Transmission Date: 20100710
  Serious: Yes (Death, Hospitalization)
  Sender: FDA-Public Use
  Company Number: US-ABBOTT-09P-163-0613481-00

PATIENT
  Sex: Male
  Weight: 102.6 kg

DRUGS (2)
  1. HUMIRA [Suspect]
     Indication: RHEUMATOID ARTHRITIS
     Dates: start: 20090813, end: 20091014
  2. HYDROCODONE [Concomitant]
     Indication: PAIN
     Route: 048

REACTIONS (2)
  - MALAISE [None]
  - PNEUMONIA [None]
